FAERS Safety Report 16618526 (Version 2)
Quarter: 2019Q3

REPORT INFORMATION
  Report Type: Spontaneous
  Country: JP (occurrence: JP)
  Receive Date: 20190723
  Receipt Date: 20190821
  Transmission Date: 20191004
  Serious: Yes (Hospitalization, Other)
  Sender: FDA-Public Use
  Company Number: JP-PFIZER INC-2019269621

PATIENT
  Age: 95 Year
  Sex: Female
  Weight: 52.3 kg

DRUGS (11)
  1. LYRICA [Suspect]
     Active Substance: PREGABALIN
     Indication: NEURALGIA
     Dosage: 75 MG, 1X/DAY
     Route: 048
     Dates: end: 20190424
  2. LYRICA [Suspect]
     Active Substance: PREGABALIN
     Dosage: 75 MG, 1X/DAY
     Route: 048
     Dates: start: 20190601
  3. TARLIGE [Suspect]
     Active Substance: MIROGABALIN BESYLATE
     Dosage: 10 MG, 2X/DAY
     Route: 048
     Dates: start: 20190516, end: 20190519
  4. MAGMITT [Concomitant]
     Active Substance: MAGNESIUM OXIDE
     Indication: CONSTIPATION
     Dosage: 1 DF, 2X/DAY
     Route: 048
     Dates: end: 20190710
  5. TRYPTANOL [AMITRIPTYLINE HYDROCHLORIDE] [Concomitant]
     Active Substance: AMITRIPTYLINE HYDROCHLORIDE
     Indication: NEURALGIA
     Dosage: 1 DF, 1X/DAY
     Route: 048
     Dates: end: 20190710
  6. SENNOSIDE [SENNOSIDE A+B] [Concomitant]
     Active Substance: SENNOSIDES A AND B
     Indication: CONSTIPATION
     Dosage: 1 DF, 1X/DAY
     Route: 048
     Dates: end: 20190710
  7. LUNESTA [Concomitant]
     Active Substance: ESZOPICLONE
     Indication: INSOMNIA
     Dosage: 1 DF, 1X/DAY
     Route: 048
     Dates: start: 20190707, end: 20190710
  8. TARLIGE [Suspect]
     Active Substance: MIROGABALIN BESYLATE
     Indication: NEURALGIA
     Dosage: 5 MG, 2X/DAY
     Route: 048
     Dates: start: 20190425, end: 20190515
  9. ACETAMINOPHEN. [Concomitant]
     Active Substance: ACETAMINOPHEN
     Indication: NEURALGIA
     Dosage: 1 DF, 2X/DAY
     Route: 048
  10. TARLIGE [Suspect]
     Active Substance: MIROGABALIN BESYLATE
     Dosage: 5 MG, 2X/DAY
     Route: 048
     Dates: end: 20190531
  11. LANSOPRAZOLE. [Concomitant]
     Active Substance: LANSOPRAZOLE
     Dosage: 1 DF, 1X/DAY
     Route: 048
     Dates: end: 20190710

REACTIONS (12)
  - Gait disturbance [Recovering/Resolving]
  - Convulsions local [Recovered/Resolved]
  - Daydreaming [Recovered/Resolved]
  - Haemoglobin decreased [Unknown]
  - White blood cell count decreased [Unknown]
  - Altered state of consciousness [Recovered/Resolved]
  - Cardiomegaly [Unknown]
  - Drug ineffective [Unknown]
  - Hypoglycaemia [Recovered/Resolved]
  - Dysstasia [Recovering/Resolving]
  - Somnolence [Unknown]
  - Sinus tachycardia [Unknown]

NARRATIVE: CASE EVENT DATE: 20190423
